FAERS Safety Report 25588291 (Version 1)
Quarter: 2025Q3

REPORT INFORMATION
  Report Type: Spontaneous
  Country: GB (occurrence: GB)
  Receive Date: 20250722
  Receipt Date: 20250722
  Transmission Date: 20251020
  Serious: Yes (Life-Threatening, Other)
  Sender: TEVA
  Company Number: GB-MHRA-WEBRADR-202507121053161280-PWTZL

PATIENT
  Age: 20 Year
  Sex: Female

DRUGS (1)
  1. MIRTAZAPINE [Suspect]
     Active Substance: MIRTAZAPINE
     Indication: Depression
     Route: 065
     Dates: start: 20250116, end: 20250117

REACTIONS (2)
  - Anger [Recovered/Resolved]
  - Psychotic disorder [Recovered/Resolved]

NARRATIVE: CASE EVENT DATE: 20250116
